FAERS Safety Report 17515322 (Version 2)
Quarter: 2021Q2

REPORT INFORMATION
  Report Type: Spontaneous
  Country: JP (occurrence: JP)
  Receive Date: 20200309
  Receipt Date: 20210408
  Transmission Date: 20210716
  Serious: Yes (Other)
  Sender: FDA-Public Use
  Company Number: JP-SA-2020SA056571

PATIENT
  Age: 77 Year
  Sex: Female

DRUGS (1)
  1. KEVZARA [Suspect]
     Active Substance: SARILUMAB
     Indication: RHEUMATOID ARTHRITIS
     Route: 058

REACTIONS (10)
  - Fungal sepsis [Unknown]
  - Necrotising soft tissue infection [Unknown]
  - Condition aggravated [Unknown]
  - Swelling face [Unknown]
  - Gingivitis [Unknown]
  - Disseminated intravascular coagulation [Unknown]
  - Septic shock [Unknown]
  - Tooth infection [Unknown]
  - Dental caries [Unknown]
  - Breath odour [Unknown]
